FAERS Safety Report 7134011-2 (Version None)
Quarter: 2010Q4

REPORT INFORMATION
  Report Type: 
  Country: None (occurrence: None)
  Receive Date: 20101117
  Receipt Date: 20101104
  Transmission Date: 20110411
  Serious: Yes (Hospitalization)
  Sender: FDA-Public Use
  Company Number: 1000017083

PATIENT
  Age: 76 Year
  Sex: Female

DRUGS (11)
  1. ESCITALOPRAM [Suspect]
     Dosage: ORAL
     Route: 048
     Dates: end: 20091130
  2. TRIMEPRAZINE TARTRATE [Suspect]
     Dosage: 15 GTT (15 GTT, 1 IN 1 D), ORAL
     Route: 048
     Dates: start: 20091030, end: 20091211
  3. IKARAN (DIHYDROERGOTAMINE MESILATE) [Suspect]
     Dosage: ORAL
     Route: 048
     Dates: start: 20091031, end: 20091130
  4. ATARAX (HYDROXIZINE) (TABLETS) [Suspect]
     Dosage: 75 MG, (25 MG, 3 IN 1 D), ORAL
     Route: 048
     Dates: start: 20091016, end: 20091211
  5. ATHYMIL (MIANSERIN HYDROCHLORIDE) (TABLETS) [Suspect]
     Dosage: 60 MG, 30 MG, 2 IN 1 D), ORAL
     Route: 048
     Dates: start: 20091016
  6. DIPIPERON (PIPAMPERONE HYDROCHLORIDE) [Suspect]
     Dosage: 90 MG (90 MG, 1 IN 1 D), ORAL
     Route: 048
     Dates: start: 20090901, end: 20091211
  7. EQUANIL [Suspect]
     Dosage: 1600 MG (400 MG, 4 IN 1 D), ORAL
     Route: 048
     Dates: start: 20090901, end: 20091210
  8. EQUANIL [Suspect]
     Dosage: 1200 MG (400 MG, 3 IN 1 D) ORAL
     Route: 048
     Dates: start: 20091211
  9. MEPRONIZINE (MEPROBAMATE, ACEPROMETAZINE) [Suspect]
     Dosage: 1 DF (1 DOSAGE FORMS, 1 IN 1 D) ORAL
     Route: 048
     Dates: start: 20091030, end: 20091211
  10. SERETIDE (FLUTICASONE, SALMETEROL) [Concomitant]
  11. DITROPAN (OXYBUTYNIN) (TABLETS) [Concomitant]

REACTIONS (2)
  - CONVULSION [None]
  - HYPONATRAEMIA [None]
